FAERS Safety Report 4936437-1 (Version None)
Quarter: 2006Q1

REPORT INFORMATION
  Report Type: 
  Country: None (occurrence: None)
  Receive Date: 20060302
  Receipt Date: 20060207
  Transmission Date: 20060701
  Serious: Yes (Disabling, Other)
  Sender: FDA-Public Use
  Company Number: US200602001583

PATIENT
  Age: 44 Year
  Sex: Female

DRUGS (3)
  1. PROZAC [Suspect]
     Indication: DEPRESSION
  2. DEPAKOTE [Concomitant]
  3. EFFEXOR [Concomitant]

REACTIONS (7)
  - DRUG INEFFECTIVE [None]
  - FRACTURE [None]
  - HYPERSOMNIA [None]
  - LEG AMPUTATION [None]
  - OSTEOMYELITIS [None]
  - ROAD TRAFFIC ACCIDENT [None]
  - SUICIDE ATTEMPT [None]
